FAERS Safety Report 9437198 (Version 2)
Quarter: 2013Q3

REPORT INFORMATION
  Report Type: Spontaneous
  Country: IT (occurrence: IT)
  Receive Date: 20130802
  Receipt Date: 20130920
  Transmission Date: 20140515
  Serious: Yes (Other)
  Sender: FDA-Public Use
  Company Number: PHHY2013IT082570

PATIENT
  Sex: Female

DRUGS (1)
  1. ZOMETA [Suspect]
     Indication: METASTASES TO BONE
     Dosage: 4 MG, CYCLIC
     Route: 042
     Dates: start: 20090101, end: 20130710

REACTIONS (3)
  - Osteonecrosis of jaw [Recovering/Resolving]
  - Bone fistula [Recovering/Resolving]
  - Abscess jaw [Recovering/Resolving]
